FAERS Safety Report 14812941 (Version 1)
Quarter: 2018Q2

REPORT INFORMATION
  Report Type: Spontaneous
  Country: HU (occurrence: HU)
  Receive Date: 20180426
  Receipt Date: 20180426
  Transmission Date: 20180711
  Serious: Yes (Other)
  Sender: FDA-Public Use
  Company Number: HU-TEVA-2018-HU-886534

PATIENT
  Sex: Male

DRUGS (1)
  1. LEUCOVORIN CA TEVA [Suspect]
     Active Substance: LEUCOVORIN CALCIUM
     Route: 065

REACTIONS (1)
  - Hypersensitivity [Unknown]
